FAERS Safety Report 4485398-0 (Version None)
Quarter: 2004Q4

REPORT INFORMATION
  Report Type: 
  Country: None (occurrence: None)
  Receive Date: 20041025
  Receipt Date: 20041025
  Transmission Date: 20050328
  Serious: Yes (Other)
  Sender: FDA-Public Use
  Company Number: None

PATIENT
  Sex: Female
  Weight: 83.9154 kg

DRUGS (1)
  1. BEXTRA [Suspect]
     Dosage: 2 ORAL
     Route: 048
     Dates: start: 20031201, end: 20031210

REACTIONS (6)
  - ACTIVITIES OF DAILY LIVING IMPAIRED [None]
  - CHEST PAIN [None]
  - FLUID RETENTION [None]
  - HEART RATE IRREGULAR [None]
  - MOVEMENT DISORDER [None]
  - MYALGIA [None]
